FAERS Safety Report 21212447 (Version 1)
Quarter: 2022Q3

REPORT INFORMATION
  Report Type: Spontaneous
  Country: US (occurrence: None)
  Receive Date: 20220812
  Receipt Date: 20220812
  Transmission Date: 20221027
  Serious: Yes (Disabling)
  Sender: FDA-Public Use
  Company Number: None

PATIENT
  Age: 69 Year
  Sex: Male
  Weight: 76.2 kg

DRUGS (3)
  1. CABOMETYX [Suspect]
     Active Substance: CABOZANTINIB S-MALATE
     Indication: Metastatic renal cell carcinoma
     Dosage: FREQUENCY : DAILY;?
     Route: 048
  2. SPIRONOLACTONE [Concomitant]
     Active Substance: SPIRONOLACTONE
     Dates: start: 20220718
  3. OLMESARTAN [Concomitant]
     Active Substance: OLMESARTAN
     Dates: start: 20220402

REACTIONS (4)
  - Palmar-plantar erythrodysaesthesia syndrome [None]
  - Nephrotic syndrome [None]
  - Proteinuria [None]
  - Oedema [None]

NARRATIVE: CASE EVENT DATE: 20220804
